FAERS Safety Report 9107871 (Version 1)
Quarter: 2013Q1

REPORT INFORMATION
  Report Type: Spontaneous
  Country: US (occurrence: US)
  Receive Date: 20130221
  Receipt Date: 20130221
  Transmission Date: 20140127
  Serious: Yes (Other)
  Sender: FDA-Public Use
  Company Number: US-PFIZER INC-2013065299

PATIENT
  Sex: Female
  Weight: 63.95 kg

DRUGS (2)
  1. CHANTIX [Suspect]
     Indication: SMOKING CESSATION THERAPY
     Dosage: UNK
  2. LYRICA [Concomitant]
     Indication: NEUROPATHY PERIPHERAL
     Dosage: TWO CAPSULES OF 150 MG, 2X/DAY

REACTIONS (2)
  - Hallucination, visual [Recovered/Resolved]
  - Nightmare [Recovered/Resolved]
